FAERS Safety Report 9506483 (Version 1)
Quarter: 2013Q3

REPORT INFORMATION
  Report Type: Spontaneous
  Country: ES (occurrence: ES)
  Receive Date: 20130906
  Receipt Date: 20130906
  Transmission Date: 20140515
  Serious: Yes (Death, Other)
  Sender: FDA-Public Use
  Company Number: PHHY2013ES096256

PATIENT
  Age: 47 Year
  Sex: Female

DRUGS (2)
  1. CICLOSPORIN [Suspect]
     Indication: IMMUNOSUPPRESSION
  2. MYCOPHENOLIC ACID [Suspect]
     Indication: IMMUNOSUPPRESSION

REACTIONS (10)
  - Angiosarcoma [Fatal]
  - Skin lesion [Fatal]
  - Pain [Fatal]
  - Asthenia [Fatal]
  - Dyspnoea [Fatal]
  - Metastases to lung [Fatal]
  - Metastases to bone [Fatal]
  - Movement disorder [Unknown]
  - Pyrexia [Unknown]
  - Cytomegalovirus infection [Unknown]
